FAERS Safety Report 24189833 (Version 1)
Quarter: 2024Q3

REPORT INFORMATION
  Report Type: Spontaneous
  Country: TR (occurrence: TR)
  Receive Date: 20240808
  Receipt Date: 20240808
  Transmission Date: 20241017
  Serious: Yes (Other)
  Sender: INGENUS
  Company Number: TR-INGENUS PHARMACEUTICALS, LLC-2024INF000035

PATIENT
  Age: 6 Year
  Sex: Female

DRUGS (2)
  1. MELPHALAN HYDROCHLORIDE [Suspect]
     Active Substance: MELPHALAN\MELPHALAN HYDROCHLORIDE
     Indication: Retinoblastoma
     Dosage: 25 ?G/0.05 ML
  2. TOPOTECAN [Concomitant]
     Active Substance: TOPOTECAN HYDROCHLORIDE
     Indication: Retinoblastoma
     Dosage: 20 ?G/0.05 ML
     Route: 065

REACTIONS (2)
  - Retinal toxicity [Unknown]
  - Product use in unapproved indication [Unknown]
